FAERS Safety Report 5631918-X (Version None)
Quarter: 2008Q1

REPORT INFORMATION
  Report Type: 
  Country: None (occurrence: None)
  Receive Date: 20080220
  Receipt Date: 20080210
  Transmission Date: 20080703
  Serious: Yes (Other)
  Sender: FDA-Public Use
  Company Number: US-AMGEN-STX264908

PATIENT
  Sex: Female

DRUGS (14)
  1. ENBREL [Suspect]
     Indication: RHEUMATOID ARTHRITIS
     Route: 058
     Dates: end: 20071201
  2. PLAQUENIL [Concomitant]
  3. PREDNISONE TAB [Concomitant]
  4. METHOTREXATE [Concomitant]
  5. ATIVAN [Concomitant]
  6. PERCOCET [Concomitant]
  7. AVINZA [Concomitant]
  8. NEURONTIN [Concomitant]
  9. CALCIUM [Concomitant]
  10. EFFEXOR [Concomitant]
  11. ALTACE [Concomitant]
  12. LOPRESSOR [Concomitant]
  13. LASIX [Concomitant]
  14. HYDROCHLOROTHIAZIDE [Concomitant]

REACTIONS (2)
  - CARDIAC FAILURE CONGESTIVE [None]
  - DIASTOLIC DYSFUNCTION [None]
